FAERS Safety Report 15130732 (Version 3)
Quarter: 2018Q3

REPORT INFORMATION
  Report Type: Spontaneous
  Country: IT (occurrence: IT)
  Receive Date: 20180711
  Receipt Date: 20180904
  Transmission Date: 20181010
  Serious: Yes (Hospitalization, Other)
  Sender: FDA-Public Use
  Company Number: IT-CELGENEUS-ITA-20180701094

PATIENT
  Age: 81 Year
  Sex: Female
  Weight: 55 kg

DRUGS (20)
  1. SPIROFUR [Concomitant]
     Active Substance: FUROSEMIDE\SPIRONOLACTONE
     Indication: OEDEMA
     Dosage: 50/20 MCG
     Route: 048
     Dates: start: 20180423
  2. POSACONAZOLE [Concomitant]
     Active Substance: POSACONAZOLE
     Indication: ANTIFUNGAL PROPHYLAXIS
     Dosage: 600 MILLIGRAM
     Route: 048
     Dates: start: 20180320, end: 20180329
  3. MEDROL [Concomitant]
     Active Substance: METHYLPREDNISOLONE
     Dosage: 8 MILLIGRAM
     Route: 048
     Dates: start: 20180521
  4. TICHE [Concomitant]
     Indication: THYROID HORMONE REPLACEMENT THERAPY
     Dosage: 112 MILLIGRAM
     Route: 048
     Dates: start: 20180303
  5. TICHE [Concomitant]
     Indication: PROPHYLAXIS
     Dosage: 7.1429 MICROGRAM
     Route: 048
     Dates: start: 20180423
  6. MEDROL [Concomitant]
     Active Substance: METHYLPREDNISOLONE
     Indication: RASH
     Dosage: 16 MILLIGRAM
     Route: 048
     Dates: start: 20180514, end: 20180520
  7. CETIRIZINA [Concomitant]
     Active Substance: CETIRIZINE HYDROCHLORIDE
     Indication: PRURITUS
     Route: 048
     Dates: start: 20180514
  8. TICHE [Concomitant]
     Dosage: 85.7143 MICROGRAM
     Route: 048
     Dates: start: 20180424
  9. LASIX [Concomitant]
     Active Substance: FUROSEMIDE
     Indication: PROPHYLAXIS
     Dosage: 25 MILLIGRAM
     Route: 048
     Dates: start: 20180325
  10. TIOTROPIO [Concomitant]
     Active Substance: TIOTROPIUM BROMIDE
     Indication: PNEUMONIA
     Dosage: 18 UG
     Route: 055
     Dates: start: 20180410
  11. POSACONAZOLE [Concomitant]
     Active Substance: POSACONAZOLE
     Dosage: 300 MILLIGRAM
     Route: 048
     Dates: start: 20180329
  12. NORVASC [Concomitant]
     Active Substance: AMLODIPINE BESYLATE
     Indication: HYPERTENSION
     Dosage: 5 MILLIGRAM
     Route: 048
     Dates: start: 20180312
  13. CLEXANE [Concomitant]
     Active Substance: ENOXAPARIN SODIUM
     Indication: THROMBOSIS PROPHYLAXIS
     Dosage: 400 IU (INTERNATIONAL UNIT)
     Route: 058
     Dates: start: 20180319
  14. AKYNZEO [Concomitant]
     Active Substance: NETUPITANT\PALONOSETRON HYDROCHLORIDE
     Indication: ANTIEMETIC SUPPORTIVE CARE
     Dosage: 300.5 MILLIGRAM
     Route: 048
     Dates: start: 20180520, end: 20180520
  15. AZACITIDINE. [Suspect]
     Active Substance: AZACITIDINE
     Indication: ACUTE MYELOID LEUKAEMIA
     Route: 058
     Dates: start: 20180320
  16. PANTORC [Concomitant]
     Active Substance: PANTOPRAZOLE SODIUM
     Indication: GASTRITIS PROPHYLAXIS
     Dosage: 40 MILLIGRAM
     Route: 048
     Dates: start: 20180303
  17. LEVOXACIN [Concomitant]
     Active Substance: LEVOFLOXACIN
     Indication: PROPHYLAXIS
     Dosage: 500 MILLIGRAM
     Route: 048
     Dates: start: 20180329
  18. AKYNZEO [Concomitant]
     Active Substance: NETUPITANT\PALONOSETRON HYDROCHLORIDE
     Dosage: 300.5 MILLIGRAM
     Route: 048
     Dates: start: 20180717, end: 20180717
  19. VENETOCLAX. [Concomitant]
     Active Substance: VENETOCLAX
     Indication: ACUTE MYELOID LEUKAEMIA
     Route: 065
  20. ROVAMICINA [Concomitant]
     Active Substance: SPIRAMYCIN
     Indication: STOMATITIS
     Dosage: 3000000 IU (INTERNATIONAL UNIT)
     Route: 048
     Dates: start: 20180614

REACTIONS (1)
  - Muscle haemorrhage [Not Recovered/Not Resolved]

NARRATIVE: CASE EVENT DATE: 20180628
